FAERS Safety Report 18182314 (Version 1)
Quarter: 2020Q3

REPORT INFORMATION
  Report Type: Spontaneous
  Country: CA (occurrence: CA)
  Receive Date: 20200821
  Receipt Date: 20200821
  Transmission Date: 20201103
  Serious: Yes (Other)
  Sender: FDA-Public Use
  Company Number: CA-TEVA-2020-CA-1816176

PATIENT
  Age: 70 Year
  Sex: Male
  Weight: 81 kg

DRUGS (7)
  1. ESBRIET [Suspect]
     Active Substance: PIRFENIDONE
     Dosage: 801 MILLIGRAM DAILY;
     Route: 048
  2. SALBUTAMOL [Concomitant]
     Active Substance: ALBUTEROL
  3. ROSUVASTATIN. [Concomitant]
     Active Substance: ROSUVASTATIN
     Route: 065
  4. GABAPENTIN. [Suspect]
     Active Substance: GABAPENTIN
     Indication: PRODUCT USED FOR UNKNOWN INDICATION
     Route: 065
  5. ESOMEPRAZOLE. [Concomitant]
     Active Substance: ESOMEPRAZOLE MAGNESIUM
  6. ESBRIET [Suspect]
     Active Substance: PIRFENIDONE
     Indication: IDIOPATHIC PULMONARY FIBROSIS
     Dosage: 2403 MILLIGRAM DAILY;
     Route: 048
  7. METFORMIN [Concomitant]
     Active Substance: METFORMIN HYDROCHLORIDE
     Route: 065

REACTIONS (21)
  - Constipation [Unknown]
  - Decreased appetite [Unknown]
  - Weight increased [Unknown]
  - Cough [Unknown]
  - Dyspnoea [Unknown]
  - Sedation [Unknown]
  - Abdominal pain upper [Unknown]
  - Haemoptysis [Unknown]
  - Neuralgia [Unknown]
  - Oropharyngeal pain [Unknown]
  - Pulmonary function test abnormal [Unknown]
  - Stress [Unknown]
  - Gait disturbance [Unknown]
  - Hyperhidrosis [Unknown]
  - Lethargy [Unknown]
  - Mobility decreased [Unknown]
  - Vomiting [Unknown]
  - Headache [Unknown]
  - Nausea [Unknown]
  - Ageusia [Unknown]
  - Fatigue [Unknown]
